FAERS Safety Report 14890105 (Version 1)
Quarter: 2018Q2

REPORT INFORMATION
  Report Type: Spontaneous
  Country: US (occurrence: US)
  Receive Date: 20180426
  Receipt Date: 20180426
  Transmission Date: 20180711
  Serious: No
  Sender: FDA-Public Use
  Company Number: None

PATIENT
  Age: 14 Year
  Sex: Female

DRUGS (1)
  1. MYCOPHENOLATE MOF TAB 500MG [Suspect]
     Active Substance: MYCOPHENOLATE MOFETIL

REACTIONS (6)
  - Cough [None]
  - Bone pain [None]
  - Constipation [None]
  - Pain in extremity [None]
  - Haematochezia [None]
  - Gastrointestinal disorder [None]

NARRATIVE: CASE EVENT DATE: 20180426
